FAERS Safety Report 11148606 (Version 1)
Quarter: 2015Q2

REPORT INFORMATION
  Report Type: Spontaneous
  Country: CN (occurrence: CN)
  Receive Date: 20150529
  Receipt Date: 20150529
  Transmission Date: 20150821
  Serious: Yes (Death, Other)
  Sender: FDA-Public Use
  Company Number: CN-ASTELLAS-2015US018299

PATIENT
  Sex: Male

DRUGS (5)
  1. PROGRAF [Suspect]
     Active Substance: TACROLIMUS\TACROLIMUS ANHYDROUS
     Indication: LIVER TRANSPLANT
     Dosage: 1.5 MG (1 MG IN THE MORNING, 0.5 MG IN THE EVENING)
     Route: 048
     Dates: start: 20150430
  2. SIMULECT [Concomitant]
     Active Substance: BASILIXIMAB
     Indication: PRODUCT USED FOR UNKNOWN INDICATION
     Dosage: UNK, UNKNOWN FREQ.
     Route: 042
     Dates: start: 20150425
  3. VFEND [Concomitant]
     Active Substance: VORICONAZOLE
     Indication: PRODUCT USED FOR UNKNOWN INDICATION
     Dosage: UNK, UNKNOWN FREQ.
     Route: 048
  4. ATG-FRESENIUS [Suspect]
     Active Substance: LAPINE T-LYMPHOCYTE IMMUNE GLOBULIN
     Indication: LIVER TRANSPLANT
     Route: 042
     Dates: start: 20150428, end: 20150430
  5. MYFORTIC [Concomitant]
     Active Substance: MYCOPHENOLATE SODIUM
     Indication: LIVER TRANSPLANT
     Dosage: 1080 UNKNOWN UNITS, (360 IN THE MORNING, 720 IN THE EVENING)
     Route: 048
     Dates: start: 20150430

REACTIONS (2)
  - Acidosis [Unknown]
  - Death [Fatal]

NARRATIVE: CASE EVENT DATE: 20150522
